FAERS Safety Report 8777916 (Version 2)
Quarter: 2012Q4

REPORT INFORMATION
  Report Type: 
  Country: CN (occurrence: CN)
  Receive Date: 20120912
  Receipt Date: 20120923
  Transmission Date: 20130627
  Serious: Yes (Other)
  Sender: FDA-Public Use
  Company Number: CN-ABBOTT-12P-035-0978129-00

PATIENT
  Age: 49 Year
  Sex: Male

DRUGS (1)
  1. DEPAKINE [Suspect]
     Indication: CONVULSION PROPHYLAXIS
     Route: 048
     Dates: start: 201201

REACTIONS (3)
  - Foaming at mouth [Unknown]
  - Epilepsy [Recovered/Resolved]
  - Convulsion [Unknown]
